FAERS Safety Report 5708700-8 (Version None)
Quarter: 2008Q2

REPORT INFORMATION
  Report Type: 
  Country: None (occurrence: None)
  Receive Date: 20080417
  Receipt Date: 20080321
  Transmission Date: 20081010
  Serious: No
  Sender: FDA-Public Use
  Company Number: US-BOEHRINGER INGELHEIM GMBH, GERMANY-2008-BP-04458BP

PATIENT
  Age: 90 Year
  Sex: Male

DRUGS (2)
  1. FLOMAX [Suspect]
     Route: 048
     Dates: start: 20080319, end: 20080319
  2. THYROID PILL [Concomitant]
     Indication: HYPOTHYROIDISM

REACTIONS (1)
  - SYNCOPE [None]
